FAERS Safety Report 6892832-5 (Version None)
Quarter: 2010Q3

REPORT INFORMATION
  Report Type: 
  Country: None (occurrence: None)
  Receive Date: 20100731
  Receipt Date: 20081003
  Transmission Date: 20110219
  Serious: Yes (Other)
  Sender: FDA-Public Use
  Company Number: US-PFIZER INC-2008083733

PATIENT
  Sex: Female
  Weight: 68.04 kg

DRUGS (1)
  1. FLAGYL [Suspect]
     Indication: CLOSTRIDIAL INFECTION
     Dates: start: 20080926

REACTIONS (2)
  - POLLAKIURIA [None]
  - POLYURIA [None]
